FAERS Safety Report 23983588 (Version 2)
Quarter: 2024Q3

REPORT INFORMATION
  Report Type: Report from Study
  Country: US (occurrence: US)
  Receive Date: 20240618
  Receipt Date: 20240725
  Transmission Date: 20241017
  Serious: Yes (Other)
  Sender: ABBVIE
  Company Number: US-ABBVIE-5799770

PATIENT
  Sex: Female

DRUGS (2)
  1. SKYRIZI [Suspect]
     Active Substance: RISANKIZUMAB-RZAA
     Indication: Crohn^s disease
     Route: 058
     Dates: start: 20240312
  2. SKYRIZI [Suspect]
     Active Substance: RISANKIZUMAB-RZAA
     Indication: Crohn^s disease
     Route: 042

REACTIONS (10)
  - Abdominal operation [Unknown]
  - Injection site pain [Unknown]
  - Fatigue [Unknown]
  - Infusion site discomfort [Unknown]
  - Injection site bruising [Unknown]
  - Dizziness [Unknown]
  - Gastrointestinal motility disorder [Unknown]
  - Nocturia [Unknown]
  - Ligament disorder [Unknown]
  - Mobility decreased [Unknown]

NARRATIVE: CASE EVENT DATE: 20240101
